FAERS Safety Report 20649666 (Version 8)
Quarter: 2023Q4

REPORT INFORMATION
  Report Type: Spontaneous
  Country: US (occurrence: US)
  Receive Date: 20220329
  Receipt Date: 20231206
  Transmission Date: 20240110
  Serious: Yes (Death, Hospitalization)
  Sender: FDA-Public Use
  Company Number: US-KARYOPHARM-2022KPT000358

PATIENT

DRUGS (15)
  1. XPOVIO [Suspect]
     Active Substance: SELINEXOR
     Indication: Plasma cell myeloma
     Dosage: 80 MG, WEEKLY
     Route: 048
     Dates: start: 20220218, end: 2022
  2. XPOVIO [Suspect]
     Active Substance: SELINEXOR
     Dosage: 80 MG, 1X/2 WEEKS
     Route: 048
     Dates: start: 2022, end: 20220923
  3. XPOVIO [Suspect]
     Active Substance: SELINEXOR
     Dosage: 80 MG, 1X/2 WEEKS
     Route: 048
     Dates: start: 2022, end: 2022
  4. XPOVIO [Suspect]
     Active Substance: SELINEXOR
     Dosage: 80 MG, 1X/2 WEEKS
     Route: 048
  5. XPOVIO [Suspect]
     Active Substance: SELINEXOR
     Dosage: 80 MG, MONTHLY
     Route: 048
  6. HYDROCHLOROTHIAZIDE [Concomitant]
     Active Substance: HYDROCHLOROTHIAZIDE
     Dosage: 25 MG
  7. ELIQUIS [Concomitant]
     Active Substance: APIXABAN
     Dosage: 5 MG
  8. PRILOSEC [Concomitant]
     Active Substance: OMEPRAZOLE MAGNESIUM
     Dosage: 20 UNK
  9. ACYCLOVIR [Concomitant]
     Active Substance: ACYCLOVIR
     Dosage: 400 MG
  10. DEXAMETHASONE PHOSPHATE [Concomitant]
     Active Substance: DEXAMETHASONE PHOSPHATE
     Dosage: 4 MG
  11. XGEVA [Concomitant]
     Active Substance: DENOSUMAB
     Dosage: INJECTION
  12. ZOFRAN [Concomitant]
     Active Substance: ONDANSETRON HYDROCHLORIDE
     Dosage: 4 MG
  13. COMPAZINE [Concomitant]
     Active Substance: PROCHLORPERAZINE MALEATE
  14. NINLARO [Concomitant]
     Active Substance: IXAZOMIB CITRATE
  15. POMALYST [Concomitant]
     Active Substance: POMALIDOMIDE

REACTIONS (9)
  - Death [Fatal]
  - Pneumonia [Unknown]
  - Dysgeusia [Not Recovered/Not Resolved]
  - Fatigue [Not Recovered/Not Resolved]
  - Nausea [Not Recovered/Not Resolved]
  - Anaemia [Unknown]
  - Pneumonia [Unknown]
  - Diarrhoea [Unknown]
  - Product dose omission issue [Unknown]

NARRATIVE: CASE EVENT DATE: 20220101
